FAERS Safety Report 7909584-X (Version None)
Quarter: 2011Q4

REPORT INFORMATION
  Report Type: 
  Country: None (occurrence: None)
  Receive Date: 20111111
  Receipt Date: 20110930
  Transmission Date: 20120403
  Serious: Yes (Hospitalization)
  Sender: FDA-Public Use
  Company Number: US-ELI_LILLY_AND_COMPANY-US201102006882

PATIENT
  Sex: Female

DRUGS (14)
  1. FLUTICASONE PROPIONATE [Concomitant]
     Indication: HYPERSENSITIVITY
  2. NASONEX [Concomitant]
  3. MUCINEX [Concomitant]
  4. SYMBICORT [Concomitant]
     Dosage: UNK, BID
  5. FORTEO [Suspect]
     Dosage: 20 UG, DAILY (1/D)
     Route: 065
  6. FORTEO [Suspect]
     Dosage: 20 UG, QD
     Route: 065
  7. ALBUTEROL [Concomitant]
  8. FORTEO [Suspect]
     Indication: OSTEOPOROSIS
     Dosage: 20 UG, DAILY (1/D)
     Route: 065
     Dates: start: 20100625
  9. FORTEO [Suspect]
     Dosage: 20 UG, QD
     Route: 065
  10. VENTOLIN [Concomitant]
  11. CHLORPHENIRAMINE MALEATE [Concomitant]
  12. ADVIL LIQUI-GELS [Concomitant]
     Dosage: UNK, PRN
  13. THEOPHYLLINE [Concomitant]
     Dosage: 200 MG, UNK
  14. PULMISON [Concomitant]

REACTIONS (5)
  - FLUSHING [None]
  - HAND FRACTURE [None]
  - CHRONIC OBSTRUCTIVE PULMONARY DISEASE [None]
  - DYSPNOEA [None]
  - FALL [None]
